FAERS Safety Report 8847599 (Version 1)
Quarter: 2012Q4

REPORT INFORMATION
  Report Type: 
  Country: ES (occurrence: ES)
  Receive Date: 20121018
  Receipt Date: 20121018
  Transmission Date: 20130627
  Serious: Yes (Death)
  Sender: FDA-Public Use
  Company Number: ES-ELI_LILLY_AND_COMPANY-ES201210005497

PATIENT

DRUGS (6)
  1. GEMCITABINE HYDROCHLORIDE [Suspect]
     Indication: ADENOCARCINOMA PANCREAS
     Dosage: 800 mg/m2, other
  2. CISPLATINUM [Concomitant]
     Indication: ADENOCARCINOMA PANCREAS
     Dosage: 40 mg/m2, other
  3. 5-FU [Concomitant]
     Indication: ADENOCARCINOMA PANCREAS
     Dosage: 2.6 g, other
  4. FLUDARABINE [Concomitant]
     Dosage: UNK, other
  5. CYCLOPHOSPHAMIDE [Concomitant]
     Indication: ADENOCARCINOMA PANCREAS
     Dosage: UNK, other
  6. THERAPEUTIC RADIOPHARMACEUTICALS [Concomitant]
     Indication: ADENOCARCINOMA PANCREAS

REACTIONS (2)
  - Death [Fatal]
  - Toxicity to various agents [None]
